FAERS Safety Report 25839861 (Version 1)
Quarter: 2025Q3

REPORT INFORMATION
  Report Type: Spontaneous
  Country: US (occurrence: US)
  Receive Date: 20250924
  Receipt Date: 20250924
  Transmission Date: 20251020
  Serious: No
  Sender: ROCHE
  Company Number: US-ROCHE-10000392256

PATIENT
  Age: 56 Year
  Sex: Female

DRUGS (3)
  1. XOLAIR [Suspect]
     Active Substance: OMALIZUMAB
     Indication: Urticaria
     Route: 058
     Dates: start: 202410
  2. TYMLOS PF PEN [Concomitant]
  3. TERIPARATIDE [Concomitant]
     Active Substance: TERIPARATIDE

REACTIONS (7)
  - Dizziness [Unknown]
  - Migraine [Unknown]
  - Heart rate increased [Unknown]
  - Chest discomfort [Unknown]
  - Swelling face [Unknown]
  - Eye swelling [Unknown]
  - Headache [Unknown]
